FAERS Safety Report 5278973-7 (Version None)
Quarter: 2007Q1

REPORT INFORMATION
  Report Type: 
  Country: None (occurrence: None)
  Receive Date: 20070328
  Receipt Date: 20061020
  Transmission Date: 20070707
  Serious: No
  Sender: FDA-Public Use
  Company Number: US-AMGEN-KDL197522

PATIENT
  Sex: Female

DRUGS (9)
  1. NEULASTA [Suspect]
     Indication: CHEMOTHERAPY
     Route: 058
     Dates: start: 20060101
  2. PREDNISONE [Concomitant]
     Route: 065
  3. PROTONIX [Concomitant]
     Route: 065
  4. POTASSIUM ACETATE [Concomitant]
     Route: 065
  5. COUMADIN [Concomitant]
     Route: 065
  6. RITUXIMAB [Concomitant]
     Route: 065
  7. CYCLOPHOSPHAMIDE [Concomitant]
     Route: 065
  8. DOXORUBICIN HYDROCHLORIDE [Concomitant]
     Route: 065
  9. VINCRISTINE [Concomitant]
     Route: 065

REACTIONS (2)
  - BONE PAIN [None]
  - CHEST PAIN [None]
